FAERS Safety Report 8381864-6 (Version None)
Quarter: 2012Q2

REPORT INFORMATION
  Report Type: 
  Country: None (occurrence: None)
  Receive Date: 20120522
  Receipt Date: 20120522
  Transmission Date: 20120825
  Serious: Yes (Other)
  Sender: FDA-Public Use
  Company Number: None

PATIENT
  Age: 32 Year
  Sex: Female
  Weight: 97.5234 kg

DRUGS (12)
  1. CELEXA [Concomitant]
  2. BUSPAR [Concomitant]
  3. VYVANSE [Concomitant]
  4. LEVOTHYROXINE SODIUM [Concomitant]
  5. ADVAIR HFA-FLUTICASONE PROPRIONATE [Concomitant]
  6. SALMETEROL [Concomitant]
  7. TRAZODONE HCL [Suspect]
     Indication: INSOMNIA
     Dosage: 1-2 TABLETS EVERY NIGHT BEFORE PO
     Route: 048
     Dates: start: 20120511, end: 20120516
  8. GENERIC OTC CETIRIZINE HYDROCHLORIDE-OTC ZYRTEC [Concomitant]
  9. VENTOLIN HFA -ALBUTEROL SULFATE INHALATION AEROSOL [Concomitant]
  10. CITALOPRAM HYDROBROMIDE [Concomitant]
  11. IBUPROFEN [Concomitant]
  12. SYNTHROID [Concomitant]

REACTIONS (7)
  - FATIGUE [None]
  - DIZZINESS [None]
  - APATHY [None]
  - IMPATIENCE [None]
  - ANXIETY [None]
  - FALL [None]
  - PERSONALITY CHANGE [None]
